FAERS Safety Report 6470983-7 (Version None)
Quarter: 2009Q4

REPORT INFORMATION
  Report Type: 
  Country: None (occurrence: None)
  Receive Date: 20091203
  Receipt Date: 20081211
  Transmission Date: 20100525
  Serious: Yes (Hospitalization, Other)
  Sender: FDA-Public Use
  Company Number: GB-ELI_LILLY_AND_COMPANY-GB200801005411

PATIENT
  Sex: Female

DRUGS (9)
  1. PROZAC [Suspect]
     Indication: DEPRESSION
     Dosage: 20 MG, DAILY (1/D)
     Route: 048
     Dates: start: 20060101
  2. HALOPERIDOL [Interacting]
     Indication: ANTIEMETIC SUPPORTIVE CARE
     Dosage: 1.5 MG, DAILY (1/D)
     Route: 048
  3. HALOPERIDOL [Interacting]
     Dosage: 2.5 MG, DAILY (1/D)
     Route: 058
     Dates: end: 20060101
  4. LEVOMEPROMAZINE [Interacting]
     Indication: ANTIEMETIC SUPPORTIVE CARE
     Dosage: 6 MG, 2/D
     Route: 048
  5. LEVOMEPROMAZINE [Interacting]
     Dosage: 6 MG, 2/D
     Route: 048
     Dates: end: 20060101
  6. CYCLIZINE [Concomitant]
     Indication: ANTIEMETIC SUPPORTIVE CARE
     Dosage: 150 MG, UNKNOWN
     Route: 058
  7. OXYCODONE HCL [Concomitant]
     Indication: PAIN
     Dosage: 15 MG, SLOW-RELEASE 2/D
     Route: 065
  8. OXYCODONE HCL [Concomitant]
     Dosage: 20 MG, UNKNOWN
     Route: 058
  9. DIAZEPAM [Concomitant]
     Indication: ANXIETY
     Dosage: 2 MG, 3/D
     Route: 048

REACTIONS (1)
  - AKATHISIA [None]
